FAERS Safety Report 4977650-7 (Version None)
Quarter: 2006Q2

REPORT INFORMATION
  Report Type: 
  Country: None (occurrence: None)
  Receive Date: 20060420
  Receipt Date: 20051202
  Transmission Date: 20061013
  Serious: No
  Sender: FDA-Public Use
  Company Number: US-GLAXOSMITHKLINE-A0584463A

PATIENT
  Age: 47 Year
  Sex: Male

DRUGS (2)
  1. ESKALITH [Suspect]
     Dosage: 450MG THREE TIMES PER DAY
     Route: 048
  2. CLONOPIN [Concomitant]

REACTIONS (2)
  - DRUG HYPERSENSITIVITY [None]
  - FOOD ALLERGY [None]
